FAERS Safety Report 21635107 (Version 2)
Quarter: 2024Q1

REPORT INFORMATION
  Report Type: Report from Study
  Country: PR (occurrence: PR)
  Receive Date: 20221123
  Receipt Date: 20240117
  Transmission Date: 20240410
  Serious: Yes (Hospitalization, Other)
  Sender: FDA-Public Use
  Company Number: PR-ABBVIE-22K-131-4306688-00

PATIENT
  Sex: Male
  Weight: 55 kg

DRUGS (5)
  1. HUMIRA [Suspect]
     Active Substance: ADALIMUMAB
     Indication: Crohn^s disease
     Dosage: 40MG/0.4ML
     Route: 058
     Dates: start: 20181126, end: 202208
  2. HUMIRA [Suspect]
     Active Substance: ADALIMUMAB
     Dosage: 40MG/0.4ML?FORM STRENGTH: 40 MILLIGRAM?START DATE TEXT: UNKNOWN
     Route: 058
  3. TOZINAMERAN [Concomitant]
     Active Substance: TOZINAMERAN
     Indication: COVID-19
     Dosage: 1ST DOSE/1 IN ONCE
     Route: 030
     Dates: start: 20210420, end: 20210420
  4. TOZINAMERAN [Concomitant]
     Active Substance: TOZINAMERAN
     Indication: COVID-19
     Dosage: 3RD DOSE/1 IN ONCE?FIRST ADMIN DATE- 2022?LAST ADMIN DATE- 2022
     Route: 030
  5. TOZINAMERAN [Concomitant]
     Active Substance: TOZINAMERAN
     Indication: COVID-19
     Dosage: 2ND DOSE/1 IN ONCE
     Route: 030
     Dates: start: 20210511, end: 20210511

REACTIONS (4)
  - Intestinal obstruction [Recovered/Resolved]
  - Intestinal stenosis [Recovering/Resolving]
  - Weight decreased [Unknown]
  - Stress [Unknown]

NARRATIVE: CASE EVENT DATE: 20200101
